FAERS Safety Report 19058278 (Version 1)
Quarter: 2021Q1

REPORT INFORMATION
  Report Type: Other
  Country: IT (occurrence: IT)
  Receive Date: 20210324
  Receipt Date: 20210324
  Transmission Date: 20210420
  Serious: Yes (Hospitalization, Other)
  Sender: FDA-Public Use
  Company Number: IT-VALIDUS PHARMACEUTICALS LLC-IT-2021VAL000930

PATIENT

DRUGS (2)
  1. ZOFENOPRIL CALCIUM [Concomitant]
     Active Substance: ZOFENOPRIL CALCIUM
     Indication: PRODUCT USED FOR UNKNOWN INDICATION
     Dosage: UNK
  2. LASIX [Suspect]
     Active Substance: FUROSEMIDE
     Indication: HYPERTENSION
     Dosage: 25 MG, UNK
     Route: 048

REACTIONS (2)
  - Hypokalaemia [Not Recovered/Not Resolved]
  - Oedema peripheral [Not Recovered/Not Resolved]

NARRATIVE: CASE EVENT DATE: 20210112
